FAERS Safety Report 21119832 (Version 1)
Quarter: 2022Q3

REPORT INFORMATION
  Report Type: Spontaneous
  Country: US (occurrence: US)
  Receive Date: 20220722
  Receipt Date: 20220722
  Transmission Date: 20221027
  Serious: No
  Sender: FDA-Public Use
  Company Number: US-PERRIGO-21US031703

PATIENT
  Age: 71 Year
  Sex: Female

DRUGS (2)
  1. MOTRIN IB [Suspect]
     Active Substance: IBUPROFEN
     Indication: Back pain
     Dosage: 200 MG, EVERY 6 HOURS
     Route: 048
     Dates: start: 20211015, end: 202110
  2. MOTRIN IB [Suspect]
     Active Substance: IBUPROFEN
     Indication: Myalgia

REACTIONS (2)
  - Joint swelling [Recovered/Resolved]
  - Peripheral swelling [Recovered/Resolved]

NARRATIVE: CASE EVENT DATE: 20211018
